FAERS Safety Report 4376875-1 (Version None)
Quarter: 2004Q2

REPORT INFORMATION
  Report Type: 
  Country: None (occurrence: None)
  Receive Date: 20040608
  Receipt Date: 20030604
  Transmission Date: 20050107
  Serious: Yes (Other)
  Sender: FDA-Public Use
  Company Number: 200311923BCC

PATIENT
  Age: 81 Year
  Sex: Male
  Weight: 88.4514 kg

DRUGS (2)
  1. ALEVE [Suspect]
     Indication: PROSTATIC PAIN
     Dosage: 220 MG, TOTAL  DAILY, ORAL
     Route: 048
     Dates: start: 20030524, end: 20030601
  2. ATENOLOL [Concomitant]

REACTIONS (1)
  - BLOOD URINE [None]
